FAERS Safety Report 14950818 (Version 1)
Quarter: 2018Q2

REPORT INFORMATION
  Report Type: Spontaneous
  Country: VN (occurrence: VN)
  Receive Date: 20180530
  Receipt Date: 20180530
  Transmission Date: 20180711
  Serious: Yes (Death)
  Sender: FDA-Public Use
  Company Number: PHHY2018VN010443

PATIENT

DRUGS (1)
  1. CERTICAN [Suspect]
     Active Substance: EVEROLIMUS
     Indication: RENAL TRANSPLANT
     Route: 065

REACTIONS (6)
  - Haematuria [Fatal]
  - Pneumonia [Fatal]
  - Hepatic cirrhosis [Fatal]
  - Hepatitis C [Fatal]
  - Superinfection [Fatal]
  - Chronic kidney disease [Fatal]
